FAERS Safety Report 8200111-9 (Version None)
Quarter: 2012Q1

REPORT INFORMATION
  Report Type: 
  Country: None (occurrence: None)
  Receive Date: 20120309
  Receipt Date: 20120309
  Transmission Date: 20120608
  Serious: Yes (Other)
  Sender: FDA-Public Use
  Company Number: None

PATIENT
  Age: 48 Year
  Sex: Female
  Weight: 104.5 kg

DRUGS (2)
  1. LAMOTRIGINE [Suspect]
     Indication: DEPRESSION
     Dosage: 100 MG QD ORAL
     Route: 048
     Dates: start: 20120207, end: 20120302
  2. LAMOTRIGINE [Suspect]
     Indication: ANGER
     Dosage: 100 MG QD ORAL
     Route: 048
     Dates: start: 20120207, end: 20120302

REACTIONS (4)
  - FACIAL PAIN [None]
  - INFLUENZA LIKE ILLNESS [None]
  - SWELLING FACE [None]
  - RASH [None]
